FAERS Safety Report 6523239-8 (Version None)
Quarter: 2009Q4

REPORT INFORMATION
  Report Type: 
  Country: None (occurrence: None)
  Receive Date: 20091231
  Receipt Date: 20091221
  Transmission Date: 20100525
  Serious: Yes (Hospitalization)
  Sender: FDA-Public Use
  Company Number: US-BIOGENIDEC-2009BI041911

PATIENT
  Age: 55 Year
  Sex: Female
  Weight: 52 kg

DRUGS (2)
  1. TYSABRI [Suspect]
     Indication: MULTIPLE SCLEROSIS
     Dates: start: 20071129, end: 20080711
  2. TYSABRI [Suspect]
     Route: 042
     Dates: start: 20090109

REACTIONS (2)
  - DEVICE FAILURE [None]
  - INTRACRANIAL HYPOTENSION [None]
